FAERS Safety Report 5113329-9 (Version None)
Quarter: 2006Q3

REPORT INFORMATION
  Report Type: 
  Country: None (occurrence: None)
  Receive Date: 20060920
  Receipt Date: 20060911
  Transmission Date: 20061208
  Serious: Yes (Hospitalization, Other)
  Sender: FDA-Public Use
  Company Number: 2006BI010322

PATIENT
  Age: 43 Year
  Sex: Female
  Weight: 71.2147 kg

DRUGS (2)
  1. AVONEX [Suspect]
     Indication: MULTIPLE SCLEROSIS
     Dosage: 30 UG;QW;IM
     Route: 030
     Dates: start: 20010101, end: 20060801
  2. AVONEX [Suspect]
     Indication: MULTIPLE SCLEROSIS
     Dosage: 30 UG;QW;IM
     Route: 030
     Dates: start: 20060801

REACTIONS (13)
  - CHILLS [None]
  - CRYING [None]
  - DIZZINESS [None]
  - HEART RATE INCREASED [None]
  - HEPATITIS [None]
  - HOT FLUSH [None]
  - HYPERHIDROSIS [None]
  - INTRA-ABDOMINAL HAEMORRHAGE [None]
  - MEMORY IMPAIRMENT [None]
  - MULTIPLE SCLEROSIS [None]
  - SALPINGO-OOPHORECTOMY [None]
  - SKIN REACTION [None]
  - VISUAL DISTURBANCE [None]
